FAERS Safety Report 23300438 (Version 1)
Quarter: 2023Q4

REPORT INFORMATION
  Report Type: Spontaneous
  Country: US (occurrence: US)
  Receive Date: 20231215
  Receipt Date: 20231215
  Transmission Date: 20240109
  Serious: No
  Sender: FDA-Public Use
  Company Number: US-ELI_LILLY_AND_COMPANY-US202312007796

PATIENT
  Age: 60 Year
  Sex: Male

DRUGS (1)
  1. TALTZ [Suspect]
     Active Substance: IXEKIZUMAB
     Indication: Psoriatic arthropathy
     Dosage: UNK UNK, UNKNOWN
     Route: 065

REACTIONS (11)
  - Back pain [Not Recovered/Not Resolved]
  - Myalgia [Unknown]
  - Eye pruritus [Unknown]
  - Chills [Unknown]
  - Cough [Recovered/Resolved]
  - Headache [Unknown]
  - Nasal congestion [Unknown]
  - Dysphagia [Unknown]
  - Dysuria [Recovered/Resolved]
  - Gait disturbance [Unknown]
  - Pain [Recovered/Resolved]

NARRATIVE: CASE EVENT DATE: 20230401
